FAERS Safety Report 7502883 (Version 5)
Quarter: 2013Q3

REPORT INFORMATION
  Report Type: Spontaneous
  Country: US (occurrence: US)
  Receive Date: 20100727
  Receipt Date: 20130711
  Transmission Date: 20140515
  Serious: Yes (Death, Hospitalization, Other)
  Sender: FDA-Public Use
  Company Number: US-ELI_LILLY_AND_COMPANY-US201007003202

PATIENT
  Age: 52 Year
  Sex: Male

DRUGS (2)
  1. ZYPREXA RELPREVV [Suspect]
     Dosage: 405 MG, OTHER
     Dates: start: 20100604
  2. HALDOL DECANOATE [Concomitant]
     Indication: SCHIZOPHRENIA

REACTIONS (6)
  - Brain death [Fatal]
  - Neuroleptic malignant syndrome [Unknown]
  - Cardiac arrest [Unknown]
  - Swollen tongue [Unknown]
  - Obstructive airways disorder [Unknown]
  - Pyrexia [Unknown]
